FAERS Safety Report 4698271-X (Version None)
Quarter: 2005Q2

REPORT INFORMATION
  Report Type: 
  Country: None (occurrence: None)
  Receive Date: 20050623
  Receipt Date: 20050615
  Transmission Date: 20051028
  Serious: Yes (Hospitalization)
  Sender: FDA-Public Use
  Company Number: TN-SANOFI-SYNTHELABO-A01200504211

PATIENT
  Sex: Male

DRUGS (12)
  1. STILNOX [Suspect]
     Indication: INSOMNIA
     Route: 048
     Dates: start: 20050515, end: 20050516
  2. STILNOX [Suspect]
     Indication: ANXIETY
     Route: 048
     Dates: start: 20050515, end: 20050516
  3. DIANTALVIC [Concomitant]
     Indication: PAIN
     Route: 048
     Dates: start: 20050510, end: 20050518
  4. RISORDAN [Concomitant]
     Indication: CORONARY ARTERY DISEASE
     Route: 042
     Dates: start: 20050510, end: 20050518
  5. TRAMADOL HCL [Concomitant]
     Route: 048
     Dates: start: 20050510, end: 20050518
  6. HEPARIN [Concomitant]
     Indication: CORONARY ARTERY DISEASE
     Route: 042
     Dates: start: 20050510, end: 20050518
  7. OFLOXACIN [Concomitant]
     Route: 048
     Dates: start: 20050510, end: 20050518
  8. OMEPRAZOLE [Concomitant]
     Indication: PROPHYLAXIS
     Dosage: 20 MG
     Route: 048
     Dates: start: 20050510, end: 20050518
  9. BISOPROLOL FUMARATE [Concomitant]
     Indication: HYPERTENSION
     Dosage: 10 MG
     Route: 048
     Dates: start: 20050510, end: 20050518
  10. BISOPROLOL FUMARATE [Concomitant]
     Indication: CORONARY ARTERY DISEASE
     Dosage: 10 MG
     Route: 048
     Dates: start: 20050510, end: 20050518
  11. AMAREL [Concomitant]
     Indication: DIABETES MELLITUS
     Dosage: UNK
     Route: 048
  12. GLUCOPHAGE [Concomitant]
     Indication: DRUG USE FOR UNKNOWN INDICATION
     Dosage: UNK
     Route: 048

REACTIONS (3)
  - AGGRESSION [None]
  - AGITATION [None]
  - DELIRIUM [None]
